FAERS Safety Report 9753715 (Version 1)
Quarter: 2013Q4

REPORT INFORMATION
  Report Type: Spontaneous
  Country: US (occurrence: US)
  Receive Date: 20131213
  Receipt Date: 20131213
  Transmission Date: 20140711
  Serious: No
  Sender: FDA-Public Use
  Company Number: US-GILEAD-2010-0026564

PATIENT
  Age: 58 Year
  Sex: Male
  Weight: 71.21 kg

DRUGS (10)
  1. LETAIRIS [Suspect]
     Indication: PULMONARY ARTERIAL HYPERTENSION
     Route: 048
     Dates: start: 20091222, end: 20100111
  2. LASIX [Concomitant]
  3. PANTOPRAZOLE [Concomitant]
  4. CELEBREX [Concomitant]
  5. LEVAQUIN [Concomitant]
  6. PREDNISONE [Concomitant]
  7. CHANTIX [Concomitant]
  8. CLARITHROMYCIN [Concomitant]
  9. NEXAFIL SUS [Concomitant]
  10. QUINAPRIL [Concomitant]

REACTIONS (2)
  - Chest pain [Not Recovered/Not Resolved]
  - Dyspnoea [Not Recovered/Not Resolved]
